FAERS Safety Report 5496449-9 (Version None)
Quarter: 2007Q4

REPORT INFORMATION
  Report Type: 
  Country: None (occurrence: None)
  Receive Date: 20071025
  Receipt Date: 20071015
  Transmission Date: 20080405
  Serious: Yes (Other)
  Sender: FDA-Public Use
  Company Number: US-JNJFOC-20070804636

PATIENT
  Sex: Male

DRUGS (4)
  1. TYLENOL W/ CODEINE NO. 3 [Suspect]
     Indication: PAIN
     Route: 065
  2. TYLENOL W/ CODEINE NO. 3 [Suspect]
     Indication: TOOTHACHE
     Dosage: 30MG/300MG
     Route: 065
  3. ASPIRIN [Suspect]
     Indication: DRUG USE FOR UNKNOWN INDICATION
     Route: 065
  4. PENICILLIN V POTASSIUM [Suspect]
     Indication: INFECTION

REACTIONS (2)
  - RASH PRURITIC [None]
  - SWELLING FACE [None]
